FAERS Safety Report 16726299 (Version 1)
Quarter: 2019Q3

REPORT INFORMATION
  Report Type: Spontaneous
  Country: GB (occurrence: GB)
  Receive Date: 20190821
  Receipt Date: 20190821
  Transmission Date: 20191005
  Serious: Yes (Hospitalization, Other)
  Sender: FDA-Public Use
  Company Number: GB-TEVA-2019-GB-1094289

PATIENT
  Age: 40 Year
  Sex: Female
  Weight: 74 kg

DRUGS (17)
  1. ZOMORPH [Concomitant]
     Active Substance: MORPHINE SULFATE
  2. RANITIDINE. [Concomitant]
     Active Substance: RANITIDINE
  3. MEBEVERINE [Concomitant]
     Active Substance: MEBEVERINE
  4. MYCOPHENOLIC ACID. [Suspect]
     Active Substance: MYCOPHENOLIC ACID
     Indication: SCLERODERMA
     Route: 048
     Dates: start: 20150401, end: 20190127
  5. PREGABALIN. [Concomitant]
     Active Substance: PREGABALIN
  6. BOSENTAN. [Concomitant]
     Active Substance: BOSENTAN
  7. PAROXETINE. [Concomitant]
     Active Substance: PAROXETINE
  8. FEXOFENADINE [Concomitant]
     Active Substance: FEXOFENADINE HYDROCHLORIDE
  9. ESOMEPRAZOLE. [Concomitant]
     Active Substance: ESOMEPRAZOLE MAGNESIUM
  10. CYCLIZINE [Concomitant]
     Active Substance: CYCLIZINE
     Dosage: 50MG THREE TIMES A DAY
  11. RAMIPRIL. [Concomitant]
     Active Substance: RAMIPRIL
  12. METHOCARBAMOL. [Concomitant]
     Active Substance: METHOCARBAMOL
     Dosage: AT NIGHT
  13. DESOGESTREL [Concomitant]
     Active Substance: DESOGESTREL
  14. FOLIC ACID. [Concomitant]
     Active Substance: FOLIC ACID
     Dosage: (NOT ON METHOTREXATE DAY)
  15. METHOTREXATE. [Concomitant]
     Active Substance: METHOTREXATE
     Route: 058
  16. METOCLOPRAMIDE. [Concomitant]
     Active Substance: METOCLOPRAMIDE
  17. CELECOXIB. [Concomitant]
     Active Substance: CELECOXIB

REACTIONS (2)
  - Oesophageal stenosis [Recovered/Resolved]
  - Oesophageal ulcer [Recovered/Resolved]
